FAERS Safety Report 14160081 (Version 1)
Quarter: 2017Q4

REPORT INFORMATION
  Report Type: Spontaneous
  Country: CN (occurrence: CN)
  Receive Date: 20171106
  Receipt Date: 20171106
  Transmission Date: 20180321
  Serious: Yes (Hospitalization)
  Sender: FDA-Public Use
  Company Number: CN-ABBVIE-17P-035-2151057-00

PATIENT
  Age: 60 Year
  Sex: Male

DRUGS (3)
  1. CEFUROXIME AXETIL. [Suspect]
     Active Substance: CEFUROXIME AXETIL
     Indication: CHRONIC GASTRITIS
     Route: 048
     Dates: start: 20161216, end: 20161227
  2. KLACID [Suspect]
     Active Substance: CLARITHROMYCIN
     Indication: CHRONIC GASTRITIS
     Route: 065
     Dates: start: 20161216, end: 20161227
  3. TINIDAZOLE. [Suspect]
     Active Substance: TINIDAZOLE
     Indication: CHRONIC GASTRITIS
     Route: 065
     Dates: start: 20161216, end: 20161227

REACTIONS (1)
  - Drug eruption [Recovering/Resolving]

NARRATIVE: CASE EVENT DATE: 20161227
